FAERS Safety Report 8826251 (Version 2)
Quarter: 2012Q4

REPORT INFORMATION
  Report Type: 
  Country: JP (occurrence: JP)
  Receive Date: 20121005
  Receipt Date: 20121017
  Transmission Date: 20130627
  Serious: Yes (Other)
  Sender: FDA-Public Use
  Company Number: JP-PFIZER INC-2012241995

PATIENT
  Age: 79 Year
  Sex: Female

DRUGS (2)
  1. REVATIO [Suspect]
     Indication: PULMONARY THROMBOSIS
     Dosage: UNK
     Route: 048
     Dates: start: 201112
  2. WARFARIN [Concomitant]

REACTIONS (3)
  - Colon cancer [Unknown]
  - Anaemia [Unknown]
  - Off label use [Unknown]
